FAERS Safety Report 5745106-X (Version None)
Quarter: 2008Q2

REPORT INFORMATION
  Report Type: 
  Country: None (occurrence: None)
  Receive Date: 20080521
  Receipt Date: 20080513
  Transmission Date: 20081010
  Serious: Yes (Death, Other)
  Sender: FDA-Public Use
  Company Number: PHBS2008US04535

PATIENT
  Age: 32 Year
  Sex: Male

DRUGS (12)
  1. BASILIXIMAB [Suspect]
     Indication: HEART TRANSPLANT
     Dosage: 20 MG, ONCE/SINGLE
     Route: 042
  2. BASILIXIMAB [Suspect]
     Dosage: 20 MG, ONCE/SINGLE
     Route: 042
  3. CYCLOSPORINE [Suspect]
     Indication: HEART TRANSPLANT
  4. METHYLPREDNISOLONE [Suspect]
     Indication: HEART TRANSPLANT
     Dosage: 500 MG/D
     Route: 042
  5. METHYLPREDNISOLONE [Suspect]
     Dosage: 125 MG, Q8H
     Route: 042
  6. MYCOPHENOLATE MOFETIL [Suspect]
     Indication: HEART TRANSPLANT
     Dosage: 1000 MG, BID
  7. PREDNISONE TAB [Suspect]
     Indication: HEART TRANSPLANT
     Dosage: 2.5 MG/D
     Route: 048
  8. PREDNISONE TAB [Suspect]
     Dosage: 1 MG/KG/D
     Route: 048
  9. CYTOMEGALOVIRUS IMMUNE GLOBULIN [Concomitant]
     Indication: ANTIVIRAL PROPHYLAXIS
     Dosage: 150 MG/KG/DAY
     Route: 042
  10. CYTOMEGALOVIRUS IMMUNE GLOBULIN [Concomitant]
     Dosage: 100 MG/KG/DAY
  11. GANCICLOVIR [Concomitant]
     Indication: ANTIVIRAL PROPHYLAXIS
     Dosage: 5 MG/KG/DAY
  12. VALGANCICLOVIR HCL [Concomitant]
     Indication: ANTIVIRAL PROPHYLAXIS
     Dosage: 450 MG, BID
     Route: 048

REACTIONS (6)
  - CYTOMEGALOVIRUS INFECTION [None]
  - CYTOMEGALOVIRUS TEST POSITIVE [None]
  - DEATH [None]
  - DIARRHOEA [None]
  - LEUKOPENIA [None]
  - PYREXIA [None]
